FAERS Safety Report 9682039 (Version 2)
Quarter: 2013Q4

REPORT INFORMATION
  Report Type: Spontaneous
  Country: US (occurrence: US)
  Receive Date: 20131111
  Receipt Date: 20131223
  Transmission Date: 20140711
  Serious: Yes (Hospitalization)
  Sender: FDA-Public Use
  Company Number: US-PFIZER INC-2013316368

PATIENT
  Age: 30 Year
  Sex: Male

DRUGS (1)
  1. BENEFIX [Suspect]
     Indication: HAEMOPHILIA
     Dosage: 24000 IU, MONTHLY

REACTIONS (1)
  - Haemorrhage [Recovering/Resolving]
